FAERS Safety Report 12142788 (Version 1)
Quarter: 2016Q1

REPORT INFORMATION
  Report Type: Spontaneous
  Country: US (occurrence: US)
  Receive Date: 20160303
  Receipt Date: 20160303
  Transmission Date: 20160526
  Serious: Yes (Other)
  Sender: FDA-Public Use
  Company Number: US-BAYER-2016-040312

PATIENT
  Age: 86 Year
  Sex: Male

DRUGS (1)
  1. AFRIN NO DRIP SEVERE CONGESTION [Suspect]
     Active Substance: OXYMETAZOLINE HYDROCHLORIDE
     Indication: DYSPNOEA
     Dosage: 2 DF, BID
     Route: 045

REACTIONS (3)
  - Epistaxis [None]
  - Drug dependence [None]
  - Product use issue [None]
